FAERS Safety Report 16681945 (Version 1)
Quarter: 2019Q3

REPORT INFORMATION
  Report Type: Spontaneous
  Country: GB (occurrence: GB)
  Receive Date: 20190808
  Receipt Date: 20190808
  Transmission Date: 20191004
  Serious: Yes (Other)
  Sender: FDA-Public Use
  Company Number: GB-TEVA-2019-GB-1089218

PATIENT
  Age: 49 Year
  Sex: Female
  Weight: 60 kg

DRUGS (9)
  1. DIAZEPAM. [Concomitant]
     Active Substance: DIAZEPAM
     Dosage: 1  DOSAGE FORMS
     Dates: start: 20180514
  2. ZONISAMIDE. [Concomitant]
     Active Substance: ZONISAMIDE
     Dosage: 1 DOSAGE FORMS, 1 DAYS, INCREASE BY 25MG EVERY WEEK
     Dates: start: 20190320, end: 20190417
  3. LACOSAMIDE. [Concomitant]
     Active Substance: LACOSAMIDE
     Dosage: 2 DOSAGE FORMS, 1 DAYS
     Dates: start: 20180718
  4. CANESTEN [Concomitant]
     Active Substance: CLOTRIMAZOLE
     Dosage: AS DIRECTED
     Dates: start: 20190426, end: 20190427
  5. TOPIRAMATE. [Suspect]
     Active Substance: TOPIRAMATE
     Dosage: 25 MILLIGRAM
     Dates: start: 20190508
  6. TRILEPTAL [Concomitant]
     Active Substance: OXCARBAZEPINE
     Dosage: 3  DOSAGE FORMS, 1 DAYS, MORNING AND ANOTHER TIME
     Dates: start: 20190123
  7. ZONEGRAN [Concomitant]
     Active Substance: ZONISAMIDE
     Dosage: 1  DOSAGE FORMS, 1 DAYS, INCREASE BY 25MG EVERY WEEK
     Dates: start: 20190322, end: 20190419
  8. AZELAIC ACID. [Concomitant]
     Active Substance: AZELAIC ACID
     Dosage: 1  DOSAGE FORMS, 1 DAYS, APPLY AT NIGHT
     Dates: start: 20180514
  9. HYDROXOCOBALAMIN [Concomitant]
     Active Substance: HYDROXOCOBALAMIN
     Dosage: USE AS DIRECTED
     Dates: start: 20190311

REACTIONS (1)
  - Aphasia [Unknown]

NARRATIVE: CASE EVENT DATE: 20190508
